FAERS Safety Report 6807382-1 (Version None)
Quarter: 2010Q2

REPORT INFORMATION
  Report Type: 
  Country: None (occurrence: None)
  Receive Date: 20100629
  Receipt Date: 20090223
  Transmission Date: 20101027
  Serious: Yes (Hospitalization, Other)
  Sender: FDA-Public Use
  Company Number: US-PFIZER INC-2008063645

PATIENT
  Sex: Male
  Weight: 68 kg

DRUGS (2)
  1. BEXTRA [Suspect]
     Indication: BACK PAIN
     Dosage: 20 MG, 1X/DAY
     Dates: start: 20030107, end: 20030501
  2. BEXTRA [Suspect]
     Indication: MYALGIA

REACTIONS (1)
  - MYOCARDIAL INFARCTION [None]
